FAERS Safety Report 9561693 (Version 1)
Quarter: 2013Q3

REPORT INFORMATION
  Report Type: Spontaneous
  Country: US (occurrence: None)
  Receive Date: 20130830
  Receipt Date: 20130830
  Transmission Date: 20140515
  Serious: Yes (Hospitalization)
  Sender: FDA-Public Use
  Company Number: AMAG201300061

PATIENT
  Age: 74 Year
  Sex: Male

DRUGS (2)
  1. FERAHEME (FERUMOXYTOL) INJECTION, 510MG [Suspect]
     Indication: IRON DEFICIENCY ANAEMIA
     Dosage: 150 MG, SINGLE, IV PUSH
     Dates: start: 20130328, end: 20130328
  2. COUMADIN (COUMADIN) [Concomitant]

REACTIONS (5)
  - Hypersensitivity [None]
  - Hypotension [None]
  - Hyperhidrosis [None]
  - Back pain [None]
  - Nausea [None]
